FAERS Safety Report 11873751 (Version 1)
Quarter: 2015Q4

REPORT INFORMATION
  Report Type: Spontaneous
  Country: US (occurrence: US)
  Receive Date: 20151229
  Receipt Date: 20151229
  Transmission Date: 20160305
  Serious: No
  Sender: FDA-Public Use
  Company Number: US-TEVA-616826ACC

PATIENT
  Age: 22 Year
  Sex: Female
  Weight: 63.56 kg

DRUGS (1)
  1. PARAGARD T 380A [Suspect]
     Active Substance: COPPER
     Indication: CONTRACEPTION
     Dates: start: 20151009, end: 20151125

REACTIONS (7)
  - Nausea [Unknown]
  - Vaginal haemorrhage [Unknown]
  - Abdominal pain lower [Unknown]
  - Device expulsion [Recovered/Resolved]
  - Muscle spasms [Unknown]
  - Vaginal discharge [Unknown]
  - Menstruation delayed [Unknown]

NARRATIVE: CASE EVENT DATE: 20151125
